FAERS Safety Report 10910405 (Version 1)
Quarter: 2015Q1

REPORT INFORMATION
  Report Type: Spontaneous
  Country: US (occurrence: US)
  Receive Date: 20150312
  Receipt Date: 20150312
  Transmission Date: 20150721
  Serious: No
  Sender: FDA-Public Use
  Company Number: US-SA-2014SA125095

PATIENT
  Sex: Male

DRUGS (1)
  1. NASACORT ALLERGY 24HR [Suspect]
     Active Substance: TRIAMCINOLONE ACETONIDE
     Indication: MULTIPLE ALLERGIES
     Dosage: STARTED OFF WITH 2 SPRAYS PER NOSTRIL AND NOW USES 1 SPRAY PER NOSTRIL
     Route: 045
     Dates: start: 201405

REACTIONS (4)
  - Nasal congestion [Recovering/Resolving]
  - Back pain [Recovering/Resolving]
  - Insomnia [Unknown]
  - Drug dose omission [Unknown]
